FAERS Safety Report 9469937 (Version 1)
Quarter: 2013Q3

REPORT INFORMATION
  Report Type: Spontaneous
  Country: US (occurrence: US)
  Receive Date: 20130822
  Receipt Date: 20130822
  Transmission Date: 20140515
  Serious: Yes (Other)
  Sender: FDA-Public Use
  Company Number: US-ROXANE LABORATORIES, INC.-2013-RO-01362RO

PATIENT
  Age: 47 Year
  Sex: Male

DRUGS (2)
  1. DEXAMETHASONE [Suspect]
  2. INSULIN [Suspect]
     Indication: TYPE 2 DIABETES MELLITUS
     Route: 042

REACTIONS (4)
  - Hypernatraemia [Unknown]
  - Polyuria [Unknown]
  - Plasma protein metabolism disorder [Unknown]
  - Hyperosmolar state [Unknown]
